FAERS Safety Report 8390156-0 (Version None)
Quarter: 2012Q2

REPORT INFORMATION
  Report Type: 
  Country: None (occurrence: None)
  Receive Date: 20120529
  Receipt Date: 20120515
  Transmission Date: 20120825
  Serious: Yes (Hospitalization)
  Sender: FDA-Public Use
  Company Number: US-PFIZER INC-2012118249

PATIENT
  Age: 79 Year
  Sex: Male
  Weight: 86 kg

DRUGS (4)
  1. PLACEBO [Suspect]
     Indication: RENAL CELL CARCINOMA
     Dosage: CYCLIC
     Dates: start: 20090211, end: 20090227
  2. BLINDED SORAFENIB [Suspect]
     Indication: RENAL CELL CARCINOMA
     Dosage: CYCLIC
     Dates: start: 20090211, end: 20090227
  3. BLINDED NO SUBJECT DRUG [Suspect]
     Indication: RENAL CELL CARCINOMA
     Dosage: CYCLIC
     Dates: start: 20090211, end: 20090227
  4. SUNITINIB MALATE [Suspect]
     Indication: RENAL CELL CARCINOMA
     Dosage: CYCLIC
     Dates: start: 20090211, end: 20090227

REACTIONS (3)
  - NAUSEA [None]
  - NON-CARDIAC CHEST PAIN [None]
  - FATIGUE [None]
